FAERS Safety Report 9518927 (Version 1)
Quarter: 2013Q1

REPORT INFORMATION
  Report Type: Spontaneous
  Country: US (occurrence: None)
  Receive Date: 20130305
  Receipt Date: 20130305
  Transmission Date: 20140127
  Serious: Yes (Life-Threatening)
  Sender: FDA-Public Use
  Company Number: 163-21880-11121330

PATIENT
  Age: 54 Year
  Sex: Male

DRUGS (4)
  1. REVLIMID [Suspect]
     Indication: PLASMA CELL MYELOMA
     Route: 048
     Dates: start: 20111208
  2. DEXAMETHASONE (DEXAMETHASONE) [Concomitant]
  3. PERCOCET (OXYCOCET) (UNKNOWN) [Concomitant]
  4. MORPHINE [Concomitant]

REACTIONS (4)
  - Deep vein thrombosis [None]
  - Nodule [None]
  - Pain in extremity [None]
  - Local swelling [None]
